FAERS Safety Report 7755221-7 (Version None)
Quarter: 2011Q3

REPORT INFORMATION
  Report Type: 
  Country: None (occurrence: None)
  Receive Date: 20110913
  Receipt Date: 20110829
  Transmission Date: 20111222
  Serious: Yes (Death)
  Sender: FDA-Public Use
  Company Number: 2011P1008678

PATIENT
  Age: 91 Year
  Sex: Female

DRUGS (7)
  1. FENTANYL [Suspect]
     Indication: DECUBITUS ULCER
     Dosage: QW;TDER Q3D;TDER
     Route: 062
     Dates: start: 20110514, end: 20110702
  2. FENTANYL [Suspect]
     Indication: DECUBITUS ULCER
     Dosage: QW;TDER Q3D;TDER
     Route: 062
     Dates: start: 20110703, end: 20110726
  3. PANTOPRAZOLE [Concomitant]
  4. TRAMADOL HCL [Suspect]
     Indication: BACK PAIN
     Dosage: PO ;PRN;PO
     Route: 048
     Dates: start: 20110101, end: 20110301
  5. TRAMADOL HCL [Suspect]
     Indication: BACK PAIN
     Dosage: PO ;PRN;PO
     Route: 048
     Dates: start: 20110324, end: 20110724
  6. NORPSAN (NO PREF. NAME) [Suspect]
     Indication: DECUBITUS ULCER
     Dosage: QW;TDER
     Route: 062
     Dates: start: 20110324, end: 20110514
  7. MORPHINE [Suspect]
     Indication: DECUBITUS ULCER
     Dosage: 3 UG;PARN
     Route: 051
     Dates: start: 20110724, end: 20110726

REACTIONS (12)
  - ILEAL OPERATION [None]
  - DYSPHAGIA [None]
  - RESPIRATORY ARREST [None]
  - DYSPNOEA [None]
  - AGITATION [None]
  - DYSKINESIA [None]
  - DECUBITUS ULCER [None]
  - GASTRIC PERFORATION [None]
  - SPEECH DISORDER [None]
  - MUSCULAR WEAKNESS [None]
  - GASTRIC ULCER [None]
  - CLOSTRIDIAL INFECTION [None]
